FAERS Safety Report 22030533 (Version 1)
Quarter: 2023Q1

REPORT INFORMATION
  Report Type: Spontaneous
  Country: US (occurrence: US)
  Receive Date: 20230223
  Receipt Date: 20230223
  Transmission Date: 20230418
  Serious: No
  Sender: FDA-Public Use
  Company Number: US-TEVA-2023-US-2854539

PATIENT
  Age: 64 Year
  Sex: Female
  Weight: 46.72 kg

DRUGS (1)
  1. COPAXONE [Suspect]
     Active Substance: GLATIRAMER ACETATE
     Indication: Relapsing-remitting multiple sclerosis
     Dosage: 20MG/ML
     Route: 065
     Dates: start: 2012

REACTIONS (5)
  - Feeling hot [Unknown]
  - Panic reaction [Unknown]
  - Anxiety [Unknown]
  - Chest pain [Unknown]
  - Immediate post-injection reaction [Unknown]

NARRATIVE: CASE EVENT DATE: 20230202
